FAERS Safety Report 8908604 (Version 1)
Quarter: 2012Q4

REPORT INFORMATION
  Report Type: 
  Country: CH (occurrence: CH)
  Receive Date: 20121114
  Receipt Date: 20121114
  Transmission Date: 20130627
  Serious: Yes (Death, Hospitalization)
  Sender: FDA-Public Use
  Company Number: PHHY2012CH104166

PATIENT
  Age: 66 None
  Sex: Female

DRUGS (4)
  1. GILENYA [Suspect]
     Indication: RELAPSING-REMITTING MULTIPLE SCLEROSIS
     Dosage: 0.5 mg, daily
     Route: 048
     Dates: start: 201205
  2. MAGNESIUM [Concomitant]
     Indication: MUSCLE SPASMS
     Dosage: UNK UKN, UNK
  3. STILNOX [Concomitant]
     Indication: SLEEP DISORDER
     Dosage: UNK UKN, UNK
  4. TRILEPTAL [Concomitant]
     Indication: PARAESTHESIA
     Dosage: 150 mg, TID

REACTIONS (4)
  - Shock haemorrhagic [Fatal]
  - Mesothelioma malignant [Unknown]
  - Fatigue [Unknown]
  - Dyspnoea [Unknown]
